FAERS Safety Report 5164408-1 (Version None)
Quarter: 2006Q4

REPORT INFORMATION
  Report Type: 
  Country: None (occurrence: None)
  Receive Date: 20061127
  Receipt Date: 20061127
  Transmission Date: 20070319
  Serious: Yes (Other)
  Sender: FDA-Public Use
  Company Number: None

PATIENT
  Sex: Female
  Weight: 36.2878 kg

DRUGS (1)
  1. TAMIFLU [Suspect]
     Indication: INFLUENZA
     Dosage: 60 MG 2X PER DAY ORAL
     Route: 048
     Dates: start: 20061027

REACTIONS (8)
  - ABNORMAL BEHAVIOUR [None]
  - AGITATION [None]
  - CRYING [None]
  - EMOTIONAL DISORDER [None]
  - FEAR [None]
  - HALLUCINATION [None]
  - PANIC ATTACK [None]
  - THINKING ABNORMAL [None]
